FAERS Safety Report 12705267 (Version 2)
Quarter: 2016Q4

REPORT INFORMATION
  Report Type: Spontaneous
  Country: US (occurrence: US)
  Receive Date: 20160831
  Receipt Date: 20161107
  Transmission Date: 20170207
  Serious: No
  Sender: FDA-Public Use
  Company Number: US-009507513-1608USA006724

PATIENT
  Age: 15 Year
  Sex: Female
  Weight: 93.88 kg

DRUGS (1)
  1. NEXPLANON [Suspect]
     Active Substance: ETONOGESTREL
     Indication: CONTRACEPTION
     Dosage: 1 ROD/3 YEARS
     Route: 059
     Dates: start: 20160808

REACTIONS (3)
  - Device expulsion [Recovered/Resolved]
  - No adverse event [Unknown]
  - Device difficult to use [Recovered/Resolved]

NARRATIVE: CASE EVENT DATE: 20160808
